FAERS Safety Report 4334892-1 (Version None)
Quarter: 2004Q2

REPORT INFORMATION
  Report Type: 
  Country: None (occurrence: None)
  Receive Date: 20040405
  Receipt Date: 20040322
  Transmission Date: 20050107
  Serious: Yes (Disabling)
  Sender: FDA-Public Use
  Company Number: 2004205504FR

PATIENT
  Age: 16 Year
  Sex: Female

DRUGS (5)
  1. SOLU-MEDROL [Suspect]
     Dosage: 40 MG, SINGLE, IV
     Route: 042
     Dates: start: 20010706, end: 20010706
  2. DIPRIVAN [Suspect]
     Dosage: 100 MG, SINGLE, IV
     Route: 042
     Dates: start: 20010706, end: 20010706
  3. RAPIFEN (ALFENTANIL HYDROCHLORIDE) [Suspect]
     Dosage: 1.5 MG, SINGLE, IV
     Route: 042
     Dates: start: 20010706, end: 20010706
  4. PRO-DAFALGAN (PROPACETAMOL HYDROCHLORIDE) [Suspect]
     Dosage: 2 G, SINGLE, IV
     Route: 042
     Dates: start: 20010706, end: 20010706
  5. MIVACRON [Suspect]
     Dosage: 4 MG, SINGLE, IV
     Route: 042
     Dates: start: 20010706, end: 20010706

REACTIONS (7)
  - BRADYCARDIA [None]
  - BRAIN OEDEMA [None]
  - BRONCHOSPASM [None]
  - COMA [None]
  - CYANOSIS [None]
  - OXYGEN SATURATION DECREASED [None]
  - VENTRICULAR FIBRILLATION [None]
